FAERS Safety Report 8593189-4 (Version None)
Quarter: 2012Q3

REPORT INFORMATION
  Report Type: 
  Country: None (occurrence: None)
  Receive Date: 20120814
  Receipt Date: 20120806
  Transmission Date: 20120928
  Serious: Yes (Hospitalization, Other)
  Sender: FDA-Public Use
  Company Number: US-PFIZER INC-2012174431

PATIENT
  Age: 73 Year
  Sex: Male
  Weight: 94.785 kg

DRUGS (13)
  1. PLAVIX [Concomitant]
     Dosage: 75 MG, DAILY
     Route: 048
  2. COMPAZINE [Concomitant]
     Dosage: 10 MG, EVERY 6 HOURS P. R.N
     Route: 048
  3. AUGMENTIN '500' [Concomitant]
     Dosage: UNK
  4. INLYTA [Interacting]
     Dosage: UNK
  5. CITALOPRAM [Concomitant]
     Dosage: 20 UNK DAILY
  6. INLYTA [Suspect]
     Indication: RENAL NEOPLASM
     Dosage: 5 MG, 2X/DAY
     Dates: start: 20120703
  7. ATIVAN [Concomitant]
     Indication: ANXIETY
     Dosage: 0.5 MG, EVERY 8 HOURS P.R.N
     Route: 048
  8. ATIVAN [Concomitant]
     Indication: AGITATION
  9. ATORVASTATIN CALCIUM [Concomitant]
     Dosage: 10 MG, DAILY
  10. CALCIUM CARBONATE [Concomitant]
     Dosage: 2 A DAY
  11. ZOLPIDEM [Concomitant]
     Dosage: 10 MG, NIGHTLY AS NEEDED
  12. CELEXA [Interacting]
     Dosage: UNK
  13. KEFLEX [Concomitant]
     Dosage: UNK

REACTIONS (20)
  - APHASIA [None]
  - MUSCULOSKELETAL STIFFNESS [None]
  - GENERAL PHYSICAL HEALTH DETERIORATION [None]
  - GAIT DISTURBANCE [None]
  - RESPIRATORY FAILURE [None]
  - FURUNCLE [None]
  - ENCEPHALOPATHY [None]
  - MALAISE [None]
  - CHEST PAIN [None]
  - URINARY INCONTINENCE [None]
  - MENTAL STATUS CHANGES [None]
  - PYREXIA [None]
  - ANXIETY [None]
  - WEIGHT DECREASED [None]
  - DIARRHOEA [None]
  - WHITE BLOOD CELL COUNT DECREASED [None]
  - DEHYDRATION [None]
  - HEADACHE [None]
  - CONFUSIONAL STATE [None]
  - AGITATION [None]
